FAERS Safety Report 10617187 (Version 3)
Quarter: 2015Q1

REPORT INFORMATION
  Report Type: Spontaneous
  Country: US (occurrence: US)
  Receive Date: 20141201
  Receipt Date: 20150114
  Transmission Date: 20150720
  Serious: Yes (Death, Hospitalization)
  Sender: FDA-Public Use
  Company Number: US-UNITED THERAPEUTICS-UNT-2014-011502

PATIENT
  Sex: Female

DRUGS (3)
  1. REMODULIN [Suspect]
     Active Substance: TREPROSTINIL
     Dosage: 0.0505 ?G/KG, CONTINUING, STRENGTH 10 MG/ML
     Route: 058
     Dates: start: 20141010, end: 20141218
  2. REMODULIN [Suspect]
     Active Substance: TREPROSTINIL
     Indication: PULMONARY HYPERTENSION
     Dosage: 0.0285 ?G/KG, CONTINUING
     Route: 058
     Dates: start: 20141010
  3. REMODULIN [Suspect]
     Active Substance: TREPROSTINIL
     Indication: PULMONARY ARTERIAL HYPERTENSION
     Dosage: 0.043 ?G/KG, CONTINUING
     Route: 058
     Dates: start: 20141010

REACTIONS (8)
  - Pulmonary hypertension [Fatal]
  - Feeling cold [Unknown]
  - Dyspnoea [Unknown]
  - Nasal dryness [Unknown]
  - Epistaxis [Unknown]
  - Oedema peripheral [Unknown]
  - Fluid overload [Fatal]
  - Pain in extremity [Unknown]

NARRATIVE: CASE EVENT DATE: 2014
